FAERS Safety Report 9954610 (Version 1)
Quarter: 2014Q1

REPORT INFORMATION
  Report Type: Report from Study
  Country: US (occurrence: US)
  Receive Date: 20140304
  Receipt Date: 20140304
  Transmission Date: 20141002
  Serious: No
  Sender: FDA-Public Use
  Company Number: US-ABBVIE-13P-163-1083254-00

PATIENT
  Age: 35 Year
  Sex: Male

DRUGS (5)
  1. HUMIRA [Suspect]
     Indication: CROHN^S DISEASE
     Dosage: DAY 1
     Dates: start: 20130421
  2. CIPROFLOXACIN [Concomitant]
     Indication: CROHN^S DISEASE
  3. BUDESONIDE [Concomitant]
     Indication: CROHN^S DISEASE
  4. NEXIUM [Concomitant]
     Indication: GASTROOESOPHAGEAL REFLUX DISEASE
  5. AZATHIOPRINE [Concomitant]
     Indication: CROHN^S DISEASE

REACTIONS (1)
  - Injection site bruising [Recovering/Resolving]
